FAERS Safety Report 11804115 (Version 1)
Quarter: 2015Q4

REPORT INFORMATION
  Report Type: Spontaneous
  Country: US (occurrence: US)
  Receive Date: 20151204
  Receipt Date: 20151204
  Transmission Date: 20160305
  Serious: Yes (Other)
  Sender: FDA-Public Use
  Company Number: US-GLAXOSMITHKLINE-US2015GSK170884

PATIENT
  Sex: Female

DRUGS (17)
  1. DEMEROL [Concomitant]
     Active Substance: MEPERIDINE HYDROCHLORIDE
  2. ALLEGRA [Concomitant]
     Active Substance: FEXOFENADINE HYDROCHLORIDE
  3. GABAPENTIN. [Concomitant]
     Active Substance: GABAPENTIN
  4. NASACORT [Concomitant]
     Active Substance: TRIAMCINOLONE ACETONIDE
  5. CENTRUM SILVER [Concomitant]
     Active Substance: MINERALS\VITAMINS
  6. FLUDROCORT [Concomitant]
  7. ALBUTEROL. [Concomitant]
     Active Substance: ALBUTEROL
  8. VITAMIN D2 [Concomitant]
     Active Substance: ERGOCALCIFEROL
  9. ADVAIR DISKUS [Suspect]
     Active Substance: FLUTICASONE PROPIONATE\SALMETEROL XINAFOATE
     Indication: PRODUCT USED FOR UNKNOWN INDICATION
     Dosage: 250/50 MCG
  10. METOCLOPRAMIDE. [Concomitant]
     Active Substance: METOCLOPRAMIDE
  11. ASPIRIN. [Concomitant]
     Active Substance: ASPIRIN
  12. MORPHINE [Suspect]
     Active Substance: MORPHINE
     Indication: PRODUCT USED FOR UNKNOWN INDICATION
  13. SENOKOT-S [Concomitant]
     Active Substance: DOCUSATE SODIUM\SENNOSIDES
  14. METOPROLOL SUCCINATE ER [Concomitant]
     Active Substance: METOPROLOL SUCCINATE
  15. LOVASTATIN. [Concomitant]
     Active Substance: LOVASTATIN
  16. TRAMADOL. [Concomitant]
     Active Substance: TRAMADOL
  17. AMITRIPTYLINE [Concomitant]
     Active Substance: AMITRIPTYLINE

REACTIONS (6)
  - Pruritus [Unknown]
  - Rash [Unknown]
  - Pain [Unknown]
  - Drug hypersensitivity [Unknown]
  - Macular degeneration [Unknown]
  - Surgery [Unknown]
